FAERS Safety Report 8720760 (Version 2)
Quarter: 2015Q2

REPORT INFORMATION
  Report Type: Report from Study
  Country: US (occurrence: US)
  Receive Date: 20120813
  Receipt Date: 20150625
  Transmission Date: 20150821
  Serious: Yes (Hospitalization)
  Sender: FDA-Public Use
  Company Number: US-ROCHE-1100474

PATIENT
  Age: 45 Year
  Sex: Female

DRUGS (3)
  1. ACTIVASE [Suspect]
     Active Substance: ALTEPLASE
     Indication: MYOCARDIAL INFARCTION
     Route: 042
  2. TYLENOL [Concomitant]
     Active Substance: ACETAMINOPHEN
     Route: 065
  3. MEPERIDINE [Concomitant]
     Active Substance: MEPERIDINE
     Route: 065

REACTIONS (1)
  - Chest discomfort [Not Recovered/Not Resolved]
